FAERS Safety Report 7887872-3 (Version None)
Quarter: 2011Q4

REPORT INFORMATION
  Report Type: 
  Country: None (occurrence: None)
  Receive Date: 20111103
  Receipt Date: 20111103
  Transmission Date: 20120403
  Serious: Yes (Other)
  Sender: FDA-Public Use
  Company Number: None

PATIENT
  Age: 32 Year
  Sex: Female
  Weight: 72.574 kg

DRUGS (1)
  1. MIRENA [Suspect]
     Dates: start: 20080601, end: 20111031

REACTIONS (4)
  - ALOPECIA [None]
  - MIGRAINE [None]
  - AMENORRHOEA [None]
  - PYREXIA [None]
